FAERS Safety Report 8914607 (Version 1)
Quarter: 2012Q4

REPORT INFORMATION
  Report Type: 
  Country: US (occurrence: US)
  Receive Date: 20121119
  Receipt Date: 20121119
  Transmission Date: 20130627
  Serious: Yes (Death, Life-Threatening, Other)
  Sender: FDA-Public Use
  Company Number: US-ASTRAZENECA-2012SE87052

PATIENT
  Age: 6 Week
  Sex: Female

DRUGS (2)
  1. SYNAGIS [Suspect]
     Route: 030
  2. UNSPECIFIED INGREDIENT [Suspect]

REACTIONS (3)
  - Respiratory arrest [Fatal]
  - Drug hypersensitivity [Fatal]
  - Drug administration error [Fatal]
